FAERS Safety Report 10005529 (Version 1)
Quarter: 2014Q1

REPORT INFORMATION
  Report Type: Spontaneous
  Country: US (occurrence: US)
  Receive Date: 20140313
  Receipt Date: 20140313
  Transmission Date: 20141002
  Serious: Yes (Other)
  Sender: FDA-Public Use
  Company Number: US-BEH-2014041002

PATIENT
  Sex: Female

DRUGS (1)
  1. HIZENTRA [Suspect]
     Route: 058

REACTIONS (2)
  - Subcutaneous abscess [Recovered/Resolved]
  - Headache [Recovered/Resolved]
